FAERS Safety Report 21933044 (Version 1)
Quarter: 2023Q1

REPORT INFORMATION
  Report Type: Spontaneous
  Country: US (occurrence: US)
  Receive Date: 20230131
  Receipt Date: 20230131
  Transmission Date: 20230418
  Serious: Yes (Other)
  Sender: FDA-Public Use
  Company Number: US-ALXN-A202301025

PATIENT

DRUGS (1)
  1. SOLIRIS [Suspect]
     Active Substance: ECULIZUMAB
     Indication: Atypical haemolytic uraemic syndrome
     Dosage: UNK
     Route: 065

REACTIONS (5)
  - Atypical haemolytic uraemic syndrome [Unknown]
  - Disease recurrence [Unknown]
  - Renal transplant [Unknown]
  - Renal impairment [Unknown]
  - Drug ineffective [Unknown]
